FAERS Safety Report 7969141-6 (Version None)
Quarter: 2011Q4

REPORT INFORMATION
  Report Type: 
  Country: None (occurrence: None)
  Receive Date: 20111209
  Receipt Date: 20111129
  Transmission Date: 20120403
  Serious: Yes (Hospitalization, Other)
  Sender: FDA-Public Use
  Company Number: US-ELI_LILLY_AND_COMPANY-US201110001218

PATIENT
  Sex: Female

DRUGS (16)
  1. ENABLEX                            /01760402/ [Concomitant]
     Dosage: 15 MG, QD
     Route: 048
  2. NORVASC [Concomitant]
     Dosage: 5 MG, QD
     Route: 048
  3. AMLODIPINE [Concomitant]
     Dosage: 5 MG, QD
     Route: 048
  4. ZETIA [Concomitant]
  5. SYNTHROID [Concomitant]
     Dosage: 0.1 MG, QD
  6. HUMALOG [Suspect]
     Indication: DIABETES MELLITUS
     Dosage: UNK UNK, UNKNOWN
  7. ASPIRIN [Concomitant]
     Dosage: 81 MG, QD
     Route: 048
  8. LIPITOR [Concomitant]
     Dosage: 80 MG, EACH EVENING
  9. QUINAPRIL [Concomitant]
     Dosage: 40 MG, QD
     Route: 048
  10. CLOPIDOGREL [Concomitant]
     Dosage: UNK
  11. INSULIN GLARGINE [Concomitant]
     Dosage: 24 U, EACH MORNING
     Route: 058
  12. LEVOTHYROXINE SODIUM [Concomitant]
     Dosage: 100 UG, 5/W
  13. TRAZONE [Concomitant]
     Dosage: 50 MG, EACH EVENING
  14. LISINOPRIL [Concomitant]
     Dosage: 20 MG, QD
  15. ATORVASTATIN [Concomitant]
     Dosage: 80 MG, EACH EVENING
     Route: 048
  16. HYDROCHLOROTHIAZIDE [Concomitant]
     Dosage: 25 MG, QD
     Route: 048

REACTIONS (7)
  - PARAESTHESIA [None]
  - DYSARTHRIA [None]
  - ASTHENIA [None]
  - PARAESTHESIA ORAL [None]
  - CEREBROVASCULAR ACCIDENT [None]
  - HYPOAESTHESIA [None]
  - DRUG DOSE OMISSION [None]
